FAERS Safety Report 9961252 (Version 1)
Quarter: 2014Q1

REPORT INFORMATION
  Report Type: Spontaneous
  Country: GB (occurrence: GB)
  Receive Date: 20140305
  Receipt Date: 20140305
  Transmission Date: 20141002
  Serious: Yes (Hospitalization, Disabling)
  Sender: FDA-Public Use
  Company Number: GB-BAYER-2014-028232

PATIENT
  Age: 55 Year
  Sex: Female
  Weight: 53.97 kg

DRUGS (4)
  1. CIPROFLOXACIN [Suspect]
     Indication: URINARY TRACT INFECTION
     Dosage: 250 MG, BID
     Route: 048
     Dates: start: 20090321, end: 20090325
  2. ATENOLOL [Concomitant]
  3. BUSCOPAN [Concomitant]
  4. DIAZEPAM [Concomitant]

REACTIONS (4)
  - Burnout syndrome [Not Recovered/Not Resolved]
  - Fatigue [Not Recovered/Not Resolved]
  - Neuropathy peripheral [Not Recovered/Not Resolved]
  - Pain in extremity [Unknown]
